FAERS Safety Report 6782756-6 (Version None)
Quarter: 2010Q2

REPORT INFORMATION
  Report Type: 
  Country: None (occurrence: None)
  Receive Date: 20100621
  Receipt Date: 20100608
  Transmission Date: 20101027
  Serious: Yes (Hospitalization, Other)
  Sender: FDA-Public Use
  Company Number: US-ELI_LILLY_AND_COMPANY-US201004002135

PATIENT
  Sex: Female

DRUGS (2)
  1. FORTEO [Suspect]
     Indication: OSTEOPOROSIS
     Dosage: 20 UG, DAILY (1/D)
     Dates: end: 20100325
  2. FORTEO [Suspect]
     Dosage: UNK, UNKNOWN
     Dates: start: 20100101

REACTIONS (2)
  - SKIN INFECTION [None]
  - WOUND INFECTION STAPHYLOCOCCAL [None]
